FAERS Safety Report 13356776 (Version 1)
Quarter: 2017Q1

REPORT INFORMATION
  Report Type: Report from Study
  Country: US (occurrence: US)
  Receive Date: 20170321
  Receipt Date: 20170321
  Transmission Date: 20170429
  Serious: Yes (Death)
  Sender: FDA-Public Use
  Company Number: US-EXELIXIS-CABO-17008587

PATIENT
  Sex: Male

DRUGS (1)
  1. CABOMETYX [Suspect]
     Active Substance: CABOZANTINIB S-MALATE
     Indication: IMMUNE THROMBOCYTOPENIC PURPURA
     Dosage: 60 MG, QD
     Route: 048
     Dates: start: 20170206

REACTIONS (2)
  - Off label use [Unknown]
  - Death [Fatal]
